FAERS Safety Report 4731705-0 (Version None)
Quarter: 2005Q3

REPORT INFORMATION
  Report Type: 
  Country: None (occurrence: None)
  Receive Date: 20050725
  Receipt Date: 20040615
  Transmission Date: 20060218
  Serious: Yes (Hospitalization, Disabling)
  Sender: FDA-Public Use
  Company Number: WAES 0303USA02493

PATIENT
  Age: 40 Year
  Sex: Female
  Weight: 79.3795 kg

DRUGS (10)
  1. VIOXX [Suspect]
     Indication: BACK INJURY
     Dosage: 50 MG/DAILY/PO
     Route: 048
     Dates: start: 20020225, end: 20020301
  2. VIOXX [Suspect]
     Indication: BACK PAIN
     Dosage: 50 MG/DAILY/PO
     Route: 048
     Dates: start: 20020225, end: 20020301
  3. AMBIEN [Concomitant]
  4. ATIVAN [Concomitant]
  5. FLEXERIL [Concomitant]
  6. IMITREX [Concomitant]
  7. MONISTAT [Concomitant]
  8. NASONEX [Concomitant]
  9. TOPAMAX [Concomitant]
  10. WELLBUTRIN [Concomitant]

REACTIONS (16)
  - CATARACT [None]
  - DEPRESSION [None]
  - DIZZINESS [None]
  - DYSARTHRIA [None]
  - DYSPHAGIA [None]
  - EXTRAPYRAMIDAL DISORDER [None]
  - GASTRITIS [None]
  - GASTROOESOPHAGEAL REFLUX DISEASE [None]
  - HYPERTENSION [None]
  - IMPAIRED GASTRIC EMPTYING [None]
  - INTERVERTEBRAL DISC DEGENERATION [None]
  - MIGRAINE [None]
  - PROLACTINOMA [None]
  - REFLUX OESOPHAGITIS [None]
  - STEVENS-JOHNSON SYNDROME [None]
  - TOXIC EPIDERMAL NECROLYSIS [None]
